FAERS Safety Report 11644934 (Version 3)
Quarter: 2017Q1

REPORT INFORMATION
  Report Type: Spontaneous
  Country: US (occurrence: US)
  Receive Date: 20151020
  Receipt Date: 20170130
  Transmission Date: 20170428
  Serious: Yes (Life-Threatening, Hospitalization, Other)
  Sender: FDA-Public Use
  Company Number: US-ELI_LILLY_AND_COMPANY-US201510003242

PATIENT
  Age: 64 Year
  Sex: Male
  Weight: 104.31 kg

DRUGS (5)
  1. AXIRON [Suspect]
     Active Substance: TESTOSTERONE
     Indication: BLOOD TESTOSTERONE DECREASED
     Dosage: UNK, UNKNOWN
     Route: 065
     Dates: start: 20130405, end: 20131116
  2. TESTIM [Suspect]
     Active Substance: TESTOSTERONE
     Indication: ANDROGEN REPLACEMENT THERAPY
     Dosage: UNK, QD
     Route: 065
     Dates: start: 20120511, end: 20130404
  3. AXIRON [Suspect]
     Active Substance: TESTOSTERONE
     Indication: BLOOD TESTOSTERONE DECREASED
  4. TESTOSTERONE. [Suspect]
     Active Substance: TESTOSTERONE
     Indication: BLOOD TESTOSTERONE DECREASED
     Dosage: UNK, UNKNOWN
     Route: 065
     Dates: start: 2011, end: 2013
  5. HUMALOG [Concomitant]
     Active Substance: INSULIN LISPRO
     Indication: DIABETES MELLITUS
     Dosage: UNK, UNKNOWN
     Route: 065

REACTIONS (23)
  - Endotracheal intubation complication [Recovering/Resolving]
  - Pneumonia [Unknown]
  - Agitation [Recovering/Resolving]
  - Muscle injury [Unknown]
  - Cardiac arrest [Recovering/Resolving]
  - Deep vein thrombosis [Unknown]
  - Thrombosis [Unknown]
  - Anxiety [Recovering/Resolving]
  - Brain injury [Not Recovered/Not Resolved]
  - Respiratory distress [Recovering/Resolving]
  - Balance disorder [Not Recovered/Not Resolved]
  - Visual impairment [Unknown]
  - Hypoxia [Recovering/Resolving]
  - Weaning failure [Recovered/Resolved]
  - Pulmonary embolism [Not Recovered/Not Resolved]
  - Depression [Not Recovered/Not Resolved]
  - Asthenia [Not Recovered/Not Resolved]
  - Tracheitis [Recovered/Resolved]
  - Diaphragmatic paralysis [Unknown]
  - Aspiration [Unknown]
  - Mental status changes [Recovering/Resolving]
  - Fatigue [Unknown]
  - Atelectasis [Unknown]

NARRATIVE: CASE EVENT DATE: 2013
